FAERS Safety Report 14001406 (Version 2)
Quarter: 2018Q1

REPORT INFORMATION
  Report Type: Spontaneous
  Country: US (occurrence: US)
  Receive Date: 20170922
  Receipt Date: 20180117
  Transmission Date: 20180508
  Serious: Yes (Hospitalization, Other)
  Sender: FDA-Public Use
  Company Number: US-JNJFOC-20170804850

PATIENT
  Age: 59 Year
  Sex: Female
  Weight: 116.12 kg

DRUGS (4)
  1. XARELTO [Suspect]
     Active Substance: RIVAROXABAN
     Indication: THROMBOSIS PROPHYLAXIS
     Dosage: 15 MG DAILY AND 20 MG DAILY
     Route: 048
     Dates: start: 20150701, end: 201508
  2. XARELTO [Suspect]
     Active Substance: RIVAROXABAN
     Indication: HIP ARTHROPLASTY
     Dosage: 15 MG DAILY AND 20 MG DAILY
     Route: 048
     Dates: end: 20150831
  3. XARELTO [Suspect]
     Active Substance: RIVAROXABAN
     Indication: THROMBOSIS PROPHYLAXIS
     Dosage: 15 MG DAILY AND 20 MG DAILY
     Route: 048
     Dates: end: 20150831
  4. XARELTO [Suspect]
     Active Substance: RIVAROXABAN
     Indication: HIP ARTHROPLASTY
     Dosage: 15 MG DAILY AND 20 MG DAILY
     Route: 048
     Dates: start: 20150701, end: 201508

REACTIONS (2)
  - Gastrointestinal haemorrhage [Unknown]
  - Postmenopausal haemorrhage [Recovering/Resolving]

NARRATIVE: CASE EVENT DATE: 201508
